FAERS Safety Report 9402556 (Version 1)
Quarter: 2013Q3

REPORT INFORMATION
  Report Type: Spontaneous
  Country: FR (occurrence: FR)
  Receive Date: 20130716
  Receipt Date: 20130716
  Transmission Date: 20140515
  Serious: Yes (Hospitalization)
  Sender: FDA-Public Use
  Company Number: FR-ASTRAZENECA-2013SE51206

PATIENT
  Age: 26763 Day
  Sex: Male

DRUGS (14)
  1. INEXIUM [Suspect]
     Indication: GASTROOESOPHAGEAL REFLUX DISEASE
     Route: 048
  2. KEPPRA [Suspect]
     Indication: METASTASES TO CENTRAL NERVOUS SYSTEM
     Route: 048
  3. DIFFU K [Suspect]
     Indication: HYPOKALAEMIA
     Route: 048
  4. KARDEGIC [Suspect]
     Route: 048
  5. HUMALOG [Suspect]
     Indication: INSULIN-REQUIRING TYPE 2 DIABETES MELLITUS
     Dosage: LONG LASTING TREATMENT
     Route: 058
  6. TAHOR [Suspect]
     Route: 048
  7. ADANCOR [Suspect]
     Indication: ANGINA PECTORIS
     Route: 048
  8. SECTRAL [Suspect]
     Indication: ANGINA PECTORIS
     Route: 048
  9. COVERSYL [Suspect]
     Indication: CARDIAC FAILURE
     Route: 048
  10. XATRAL [Suspect]
     Route: 048
  11. CORTANCYL [Suspect]
     Route: 048
  12. PERINDROPRIL [Suspect]
     Indication: CARDIAC FAILURE
     Route: 048
  13. LEVEMIR [Suspect]
     Indication: INSULIN-REQUIRING TYPE 2 DIABETES MELLITUS
     Dosage: LONG LASTING TREATMENT
     Route: 058
  14. TARCEVA [Suspect]
     Indication: NON-SMALL CELL LUNG CANCER METASTATIC
     Route: 048
     Dates: start: 201302

REACTIONS (1)
  - Haematoma [Recovering/Resolving]
